FAERS Safety Report 13330299 (Version 1)
Quarter: 2017Q1

REPORT INFORMATION
  Report Type: Spontaneous
  Country: RU (occurrence: RU)
  Receive Date: 20170314
  Receipt Date: 20170314
  Transmission Date: 20170428
  Serious: Yes (Other)
  Sender: FDA-Public Use
  Company Number: RU-ASTRAZENECA-2017SE24926

PATIENT
  Age: 79 Year
  Sex: Male
  Weight: 80 kg

DRUGS (3)
  1. BRILINTA [Suspect]
     Active Substance: TICAGRELOR
     Indication: MYOCARDIAL INFARCTION
     Route: 048
     Dates: start: 201608
  2. BETALOC [Concomitant]
     Active Substance: METOPROLOL TARTRATE
  3. TRIMETAZIDINE [Concomitant]
     Active Substance: TRIMETAZIDINE

REACTIONS (3)
  - Blood pressure fluctuation [Not Recovered/Not Resolved]
  - Chest pain [Recovering/Resolving]
  - Heart rate abnormal [Not Recovered/Not Resolved]

NARRATIVE: CASE EVENT DATE: 201608
